FAERS Safety Report 6881439-1 (Version None)
Quarter: 2010Q3

REPORT INFORMATION
  Report Type: 
  Country: None (occurrence: None)
  Receive Date: 20100728
  Receipt Date: 20100728
  Transmission Date: 20110219
  Serious: Yes (Other)
  Sender: FDA-Public Use
  Company Number: None

PATIENT
  Sex: Male
  Weight: 80 kg

DRUGS (2)
  1. HEPARIN [Suspect]
     Indication: AORTIC ANEURYSM
     Dosage: 12,000 UNITS ONCE IV
     Route: 042
     Dates: start: 20100727, end: 20100727
  2. HEPARIN [Suspect]

REACTIONS (2)
  - PRODUCT MEASURED POTENCY ISSUE [None]
  - PRODUCT QUALITY ISSUE [None]
